FAERS Safety Report 15739248 (Version 1)
Quarter: 2018Q4

REPORT INFORMATION
  Report Type: Spontaneous
  Country: US (occurrence: US)
  Receive Date: 20181218
  Receipt Date: 20181218
  Transmission Date: 20190205
  Serious: Yes (Disabling)
  Sender: FDA-Public Use
  Company Number: None

PATIENT
  Age: 41 Year
  Sex: Female
  Weight: 65.25 kg

DRUGS (5)
  1. ZYRTEC [Concomitant]
     Active Substance: CETIRIZINE HYDROCHLORIDE
  2. OLLIE WOMENS MULTI-VITAMIN [Concomitant]
  3. ALBUTEROL. [Concomitant]
     Active Substance: ALBUTEROL
  4. MONTELUKAST [Suspect]
     Active Substance: MONTELUKAST SODIUM
     Indication: RHINITIS ALLERGIC
     Dosage: ?          QUANTITY:1 TABLET(S);?
     Route: 048
  5. FLUTICASONE. [Concomitant]
     Active Substance: FLUTICASONE

REACTIONS (20)
  - Asthma [None]
  - Breast pain [None]
  - Weight increased [None]
  - Abdominal distension [None]
  - Fluid retention [None]
  - Fatigue [None]
  - Breast swelling [None]
  - Depression [None]
  - Asthenia [None]
  - Mood altered [None]
  - Nervousness [None]
  - Apathy [None]
  - Gastrointestinal motility disorder [None]
  - Disease recurrence [None]
  - Oedema [None]
  - Anxiety [None]
  - Palpitations [None]
  - Irritability [None]
  - Agitation [None]
  - Suicidal ideation [None]

NARRATIVE: CASE EVENT DATE: 20181201
